FAERS Safety Report 6071575-4 (Version None)
Quarter: 2009Q1

REPORT INFORMATION
  Report Type: 
  Country: None (occurrence: None)
  Receive Date: 20090205
  Receipt Date: 20090205
  Transmission Date: 20090719
  Serious: Yes (Hospitalization)
  Sender: FDA-Public Use
  Company Number: None

PATIENT
  Age: 65 Year
  Sex: Male
  Weight: 68.0396 kg

DRUGS (1)
  1. LEVAQUIN [Suspect]
     Indication: PNEUMONIA
     Dosage: 250 MG U 1-18-09@1515
     Dates: start: 20090118

REACTIONS (4)
  - PYREXIA [None]
  - RASH [None]
  - STRIDOR [None]
  - TACHYCARDIA [None]
